FAERS Safety Report 16837233 (Version 2)
Quarter: 2020Q3

REPORT INFORMATION
  Report Type: Spontaneous
  Country: US (occurrence: US)
  Receive Date: 20190923
  Receipt Date: 20200813
  Transmission Date: 20201102
  Serious: No
  Sender: FDA-Public Use
  Company Number: US-NOVEN PHARMACEUTICALS, INC.-US2019000368

PATIENT

DRUGS (4)
  1. COMBIPATCH [Suspect]
     Active Substance: ESTRADIOL\NORETHINDRONE ACETATE
     Indication: NIGHT SWEATS
     Dosage: 50/140 MG, UNKNOWN
     Route: 062
     Dates: start: 2019, end: 20190705
  2. COMBIPATCH [Suspect]
     Active Substance: ESTRADIOL\NORETHINDRONE ACETATE
     Indication: HOT FLUSH
     Dosage: 50/140 MG, UNKNOWN
     Route: 062
     Dates: start: 2018, end: 2019
  3. COMBIPATCH [Suspect]
     Active Substance: ESTRADIOL\NORETHINDRONE ACETATE
     Indication: INSOMNIA
     Dosage: 50/140 MG, UNKNOWN
     Route: 062
     Dates: start: 201907, end: 2019
  4. COMBIPATCH [Suspect]
     Active Substance: ESTRADIOL\NORETHINDRONE ACETATE
     Dosage: 0.05/0.14 MG, UNKNOWN
     Dates: start: 2019, end: 20190809

REACTIONS (9)
  - Application site irritation [Unknown]
  - Application site pruritus [Not Recovered/Not Resolved]
  - Off label use [Recovered/Resolved]
  - Application site pain [Recovered/Resolved]
  - Application site erythema [Unknown]
  - Administration site scab [Unknown]
  - Application site plaque [Not Recovered/Not Resolved]
  - Application site burn [Unknown]
  - Therapy cessation [Recovered/Resolved]

NARRATIVE: CASE EVENT DATE: 2018
